FAERS Safety Report 25547627 (Version 2)
Quarter: 2025Q3

REPORT INFORMATION
  Report Type: Spontaneous
  Country: EU (occurrence: EU)
  Receive Date: 20250714
  Receipt Date: 20250724
  Transmission Date: 20251021
  Serious: Yes (Death)
  Sender: ABBVIE
  Company Number: EU-PFIZER INC-PV202500080905

PATIENT
  Sex: Male

DRUGS (2)
  1. AVIBACTAM\AZTREONAM [Suspect]
     Active Substance: AVIBACTAM\AZTREONAM
     Indication: Pseudomonas infection
     Route: 065
  2. AVIBACTAM\AZTREONAM [Suspect]
     Active Substance: AVIBACTAM\AZTREONAM
     Indication: Pseudomonas infection
     Route: 042

REACTIONS (1)
  - Pseudomonas infection [Fatal]
